FAERS Safety Report 16710744 (Version 1)
Quarter: 2019Q3

REPORT INFORMATION
  Report Type: Spontaneous
  Country: FR (occurrence: FR)
  Receive Date: 20190816
  Receipt Date: 20190816
  Transmission Date: 20191004
  Serious: Yes (Hospitalization)
  Sender: FDA-Public Use
  Company Number: FR-MYLANLABS-2019M1075748

PATIENT
  Age: 27 Year
  Sex: Female

DRUGS (3)
  1. MESNA EG [Concomitant]
     Active Substance: MESNA
     Indication: CHEMOTHERAPY UROTHELIAL TOXICITY ATTENUATION
     Dosage: 500 MILLIGRAM
     Route: 042
     Dates: start: 20170811, end: 20170811
  2. ONDANSETRON [Suspect]
     Active Substance: ONDANSETRON
     Indication: ANTIEMETIC SUPPORTIVE CARE
     Dosage: 8 MILLIGRAM
     Route: 048
     Dates: start: 20170811, end: 20170811
  3. ENDOXAN                            /00021101/ [Concomitant]
     Active Substance: CYCLOPHOSPHAMIDE
     Indication: GLOMERULONEPHRITIS PROLIFERATIVE
     Dosage: 500 MILLIGRAM
     Route: 042
     Dates: start: 20170811, end: 20170811

REACTIONS (4)
  - Face oedema [Recovered/Resolved]
  - Acute kidney injury [Recovered/Resolved]
  - Erythema [Recovered/Resolved]
  - Pyrexia [Recovered/Resolved]

NARRATIVE: CASE EVENT DATE: 20170811
